FAERS Safety Report 7242109-3 (Version None)
Quarter: 2011Q1

REPORT INFORMATION
  Report Type: 
  Country: None (occurrence: None)
  Receive Date: 20110124
  Receipt Date: 20110120
  Transmission Date: 20110831
  Serious: Yes (Other)
  Sender: FDA-Public Use
  Company Number: BR-PFIZER INC-2011010751

PATIENT
  Age: 54 Year
  Sex: Female
  Weight: 145 kg

DRUGS (5)
  1. RIVOTRIL [Concomitant]
     Indication: SLEEP DISORDER
     Dosage: 1MG 1 TABLET AT NIGHT
  2. CHAMPIX [Suspect]
     Indication: SMOKING CESSATION THERAPY
     Dosage: UNK
     Route: 048
     Dates: start: 20110105
  3. CALCIUM WITH VITAMIN D [Concomitant]
     Indication: OSTEOPOROSIS
     Dosage: UNK
  4. LINSEED OIL [Concomitant]
     Dosage: UNK
  5. CHAMPIX [Suspect]
     Dosage: 1 MG, 2X/DAY
     Route: 048

REACTIONS (11)
  - IRRITABILITY [None]
  - SELF ESTEEM DECREASED [None]
  - DECREASED APPETITE [None]
  - VIOLENCE-RELATED SYMPTOM [None]
  - MENTAL DISORDER [None]
  - SOMNOLENCE [None]
  - ASTHENIA [None]
  - CRYING [None]
  - SLEEP DISORDER [None]
  - NIGHTMARE [None]
  - NAUSEA [None]
